FAERS Safety Report 8226791-X (Version None)
Quarter: 2012Q1

REPORT INFORMATION
  Report Type: 
  Country: None (occurrence: None)
  Receive Date: 20120322
  Receipt Date: 20120316
  Transmission Date: 20120608
  Serious: Yes (Hospitalization, Other)
  Sender: FDA-Public Use
  Company Number: US-BAYER-2011-116904

PATIENT
  Age: 16 Year
  Sex: Female
  Weight: 81.633 kg

DRUGS (7)
  1. ADVAIR DISKUS 100/50 [Concomitant]
     Indication: ASTHMA
     Dosage: UNK
     Dates: start: 20050101, end: 20090101
  2. ALBUTEROL [Concomitant]
     Indication: ASTHMA
     Dosage: UNK
     Dates: start: 20000101, end: 20110101
  3. YAZ [Suspect]
     Indication: CYST
     Dosage: UNK
     Route: 048
     Dates: start: 20070401
  4. SINGULAIR [Concomitant]
     Indication: MULTIPLE ALLERGIES
     Dosage: UNK
     Dates: start: 20050101, end: 20090101
  5. YAZ [Suspect]
     Dosage: UNK
     Dates: start: 20050101, end: 20090101
  6. ZOLOFT [Concomitant]
     Dosage: UNK
     Dates: start: 20060101, end: 20090101
  7. NEXIUM [Concomitant]
     Indication: GASTROOESOPHAGEAL REFLUX DISEASE
     Dosage: UNK
     Dates: start: 20040101, end: 20110101

REACTIONS (5)
  - BILIARY DYSKINESIA [None]
  - GALLBLADDER INJURY [None]
  - INJURY [None]
  - CHOLECYSTITIS CHRONIC [None]
  - PAIN [None]
